FAERS Safety Report 8103647-4 (Version None)
Quarter: 2012Q1

REPORT INFORMATION
  Report Type: 
  Country: None (occurrence: None)
  Receive Date: 20120201
  Receipt Date: 20120130
  Transmission Date: 20120608
  Serious: Yes (Hospitalization, Other)
  Sender: FDA-Public Use
  Company Number: US-B.I. PHARMACEUTICALS,INC./RIDGEFIELD-2012-BP-01818BP

PATIENT
  Sex: Female

DRUGS (13)
  1. CALCIUM CARBONATE [Concomitant]
     Indication: SUPPLEMENTATION THERAPY
     Dosage: 1000 MG
  2. CRESTOR [Concomitant]
     Indication: BLOOD CHOLESTEROL INCREASED
     Dosage: 40 MG
     Route: 048
     Dates: start: 20010101
  3. CEFTIN [Concomitant]
     Indication: PNEUMONIA
     Dosage: 500 MG
     Route: 048
     Dates: start: 20100601
  4. LASIX [Concomitant]
     Indication: OEDEMA PERIPHERAL
     Dosage: 20 MG
  5. ACETAMINOPHEN [Concomitant]
     Indication: ARTHRITIS
     Dosage: 2600 MG
     Route: 048
  6. ZYRTEC [Concomitant]
     Indication: MULTIPLE ALLERGIES
     Dosage: 10 MG
  7. FLONASE [Concomitant]
     Indication: MULTIPLE ALLERGIES
  8. LORAZEPAM [Concomitant]
     Indication: ANXIETY
     Dosage: 1 MG
     Route: 048
     Dates: start: 20090101
  9. KEPPRA [Concomitant]
     Indication: CONVULSION
     Dosage: 1000 MG
     Route: 048
  10. ACETAMINOPHEN [Concomitant]
     Indication: CHEST PAIN
  11. SPIRIVA [Suspect]
     Indication: CHRONIC OBSTRUCTIVE PULMONARY DISEASE
     Dosage: 18 MCG
     Route: 055
     Dates: start: 20040101
  12. ISOSORBIDE DINITRATE [Concomitant]
     Indication: CHEST PAIN
     Dosage: 30 MG
     Dates: start: 20111201
  13. ASPIRIN [Concomitant]
     Indication: CARDIAC DISORDER
     Dosage: 81 MG
     Route: 048

REACTIONS (8)
  - BRAIN NEOPLASM [None]
  - LUNG NEOPLASM MALIGNANT [None]
  - AORTIC VALVE STENOSIS [None]
  - ANXIETY [None]
  - PNEUMONIA [None]
  - CHEST PAIN [None]
  - CONVULSION [None]
  - DEAFNESS BILATERAL [None]
